FAERS Safety Report 5379737-6 (Version None)
Quarter: 2007Q3

REPORT INFORMATION
  Report Type: 
  Country: None (occurrence: None)
  Receive Date: 20070706
  Receipt Date: 20070626
  Transmission Date: 20080115
  Serious: Yes (Other)
  Sender: FDA-Public Use
  Company Number: PHHO2007US10713

PATIENT
  Age: 35 Year
  Sex: Male
  Weight: 98.5 kg

DRUGS (2)
  1. MYCOPHENOLIC ACID [Suspect]
     Indication: RENAL TRANSPLANT
  2. RAPAMUNE [Suspect]
     Indication: RENAL TRANSPLANT
     Dosage: 8 MG / DAY
     Route: 048
     Dates: start: 20070427, end: 20070618

REACTIONS (1)
  - MOUTH ULCERATION [None]
